FAERS Safety Report 6730518-8 (Version None)
Quarter: 2010Q2

REPORT INFORMATION
  Report Type: 
  Country: None (occurrence: None)
  Receive Date: 20100518
  Receipt Date: 20100514
  Transmission Date: 20101027
  Serious: Yes (Death)
  Sender: FDA-Public Use
  Company Number: EG-ROCHE-698877

PATIENT
  Sex: Female
  Weight: 66 kg

DRUGS (2)
  1. BEVACIZUMAB [Suspect]
     Dosage: FORM: VIALS OF 400 MG AND 100 MG, LAST DOSE PRIOR TO SAE: 14 APRIL 2010.
     Route: 042
     Dates: start: 20100414
  2. DOCETAXEL [Suspect]
     Dosage: FORM: VIALS OF 20 MG, LAST DOSE PRIOR TO SAE: 14 APRIL 2010, FREQUENCY: ONCE
     Route: 042
     Dates: start: 20100414

REACTIONS (1)
  - SUDDEN DEATH [None]
